FAERS Safety Report 8572944-0 (Version None)
Quarter: 2012Q3

REPORT INFORMATION
  Report Type: 
  Country: None (occurrence: None)
  Receive Date: 20120806
  Receipt Date: 20120727
  Transmission Date: 20120928
  Serious: Yes (Hospitalization)
  Sender: FDA-Public Use
  Company Number: US-EISAI INC-E7389-02661-CLI-US

PATIENT
  Sex: Male
  Weight: 88 kg

DRUGS (14)
  1. RESTORIL [Concomitant]
     Indication: INSOMNIA
     Route: 048
     Dates: end: 20120716
  2. PHENERGAN HCL [Concomitant]
     Indication: NAUSEA
     Route: 048
     Dates: start: 20120708
  3. MIRALAX [Concomitant]
  4. OXYCONTIN [Concomitant]
  5. LACTULOSE [Concomitant]
     Indication: CONSTIPATION
  6. OXYCODONE HCL [Concomitant]
     Indication: PAIN
     Route: 048
     Dates: start: 20120708
  7. PROTONIX [Concomitant]
     Route: 048
     Dates: start: 20120708
  8. TYLENOL (CAPLET) [Concomitant]
     Route: 048
  9. ATARAX [Concomitant]
     Route: 048
     Dates: start: 20120708
  10. SENOKOT [Concomitant]
     Indication: CONSTIPATION
     Route: 048
     Dates: start: 20120708
  11. COMPAZINE [Concomitant]
     Indication: NAUSEA
     Route: 048
  12. TEMAZEPAM [Concomitant]
     Route: 048
  13. EPIRUBICIN HYDROCHLORIDE [Suspect]
     Indication: LEIOMYOSARCOMA
     Route: 041
     Dates: start: 20120621, end: 20120621
  14. MULTI-VITAMIN [Concomitant]
     Route: 048

REACTIONS (5)
  - CONSTIPATION [None]
  - NEUTROPENIA [None]
  - ABDOMINAL PAIN [None]
  - HEPATOTOXICITY [None]
  - HYPERBILIRUBINAEMIA [None]
